FAERS Safety Report 9186484 (Version 1)
Quarter: 2013Q1

REPORT INFORMATION
  Report Type: Spontaneous
  Country: BR (occurrence: BR)
  Receive Date: 20130325
  Receipt Date: 20130325
  Transmission Date: 20140127
  Serious: Yes (Death)
  Sender: FDA-Public Use
  Company Number: BR-PFIZER INC-2013094112

PATIENT
  Age: 72 Year
  Sex: Male
  Weight: 80 kg

DRUGS (2)
  1. LIPITOR [Suspect]
     Dosage: UNK
     Route: 048
     Dates: start: 20130114
  2. METFORMIN [Concomitant]
     Indication: DIABETES MELLITUS
     Dosage: UNK

REACTIONS (1)
  - Cerebrovascular accident [Fatal]
